FAERS Safety Report 9219088 (Version 1)
Quarter: 2013Q2

REPORT INFORMATION
  Report Type: Spontaneous
  Country: US (occurrence: None)
  Receive Date: 20130405
  Receipt Date: 20130405
  Transmission Date: 20140414
  Serious: No
  Sender: FDA-Public Use
  Company Number: None

PATIENT
  Age: 57 Year
  Sex: Female

DRUGS (1)
  1. SILDENAFIL [Suspect]
     Indication: PULMONARY HYPERTENSION
     Route: 048
     Dates: start: 20130329

REACTIONS (4)
  - Pruritus [None]
  - Skin burning sensation [None]
  - Erythema [None]
  - Swelling [None]
